FAERS Safety Report 25526660 (Version 2)
Quarter: 2025Q3

REPORT INFORMATION
  Report Type: Spontaneous
  Country: JP (occurrence: JP)
  Receive Date: 20250707
  Receipt Date: 20250723
  Transmission Date: 20251021
  Serious: Yes (Hospitalization, Other)
  Sender: PFIZER
  Company Number: JP-PFIZER INC-PV202500079781

PATIENT
  Age: 87 Year
  Sex: Female
  Weight: 39 kg

DRUGS (25)
  1. VIBRAMYCIN [Suspect]
     Active Substance: DOXYCYCLINE
     Indication: Skin ulcer
     Dosage: 100 MG 1 TABLET 2X/DAY IN THE MORNING AND EVENING
     Route: 048
     Dates: start: 20250527, end: 20250624
  2. VIBRAMYCIN [Suspect]
     Active Substance: DOXYCYCLINE
     Indication: Localised infection
  3. CARVEDILOL [Concomitant]
     Active Substance: CARVEDILOL
     Indication: Hypertension
     Dosage: 2 DF, 1X/DAY AFTER BREAKFAST
     Route: 048
  4. TOLVAPTAN [Concomitant]
     Active Substance: TOLVAPTAN
     Indication: Cardiac failure
     Dosage: 1 DF, 1X/DAY AFTER BREAKFAST
     Route: 048
  5. DAPRODUSTAT [Concomitant]
     Active Substance: DAPRODUSTAT
     Indication: Nephrogenic anaemia
     Dosage: 1 DF, 1X/DAY AFTER BREAKFAST
     Route: 048
  6. FEBUXOSTAT SAWAI [Concomitant]
     Indication: Hyperuricaemia
     Dosage: 1 DF, 1X/DAY AFTER BREAKFAST
     Route: 048
  7. ENTRESTO [Concomitant]
     Active Substance: SACUBITRIL\VALSARTAN
     Indication: Cardiac failure
     Dosage: 200 MG, 1 TABLET 2X/DAY AFTER BREAKFAST AND DINNER
     Route: 048
  8. URAPIDIL [Concomitant]
     Active Substance: URAPIDIL
     Indication: Neurogenic bladder
     Dosage: 2 DF, 2X/DAY AFTER BREAKFAST AND DINNER
     Route: 048
  9. CILOSTAZOL [Concomitant]
     Active Substance: CILOSTAZOL
     Indication: Cardiac failure
     Dosage: 1 DF, 2X/DAY AFTER BREAKFAST AND DINNER
     Route: 048
  10. FOLIC ACID [Concomitant]
     Active Substance: FOLIC ACID
     Indication: Anaemia
     Dosage: 1 DF, 3X/DAY AFTER EACH MEAL
     Route: 048
     Dates: start: 202305
  11. POLAPREZINC [Concomitant]
     Active Substance: POLAPREZINC
     Indication: Anaemia
     Dosage: 75 MG 1 TABLET 1X/DAY AFTER DINNER
     Route: 048
  12. BELSOMRA [Concomitant]
     Active Substance: SUVOREXANT
     Indication: Insomnia
     Dosage: 1 DF, 1X/DAY BEFORE SLEEP
     Route: 048
  13. CALBLOCK [AZELNIDIPINE] [Concomitant]
     Indication: Hypertension
     Dosage: 2 DF, 1X/DAY AFTER BREAKFAST
     Route: 048
  14. FUROSEMIDE [Concomitant]
     Active Substance: FUROSEMIDE
     Indication: Cardiac failure
     Dosage: 1 DF, 1X/DAY AFTER BREAKFAST
     Route: 048
  15. FUROSEMIDE [Concomitant]
     Active Substance: FUROSEMIDE
     Indication: Cardiac failure
     Dosage: 1 DF, 1X/DAY AFTER BREAKFAST
     Route: 048
  16. DISTIGMINE BROMIDE [Concomitant]
     Active Substance: DISTIGMINE BROMIDE
     Indication: Neurogenic bladder
     Dosage: 1 DF, 1X/DAY AFTER BREAKFAST
     Route: 048
  17. BIOFERMIN [BIFIDOBACTERIUM BIFIDUM] [Concomitant]
     Dosage: 2 DF, 3X/DAY AFTER EACH MEAL
     Route: 048
  18. CALONAL [Concomitant]
     Active Substance: ACETAMINOPHEN
     Dosage: 500 MG 1 TABLET 4X/DAY AFTER EACH MEAL AND BEFORE SLEEP
     Route: 048
  19. LAGNOS NF [Concomitant]
     Dosage: 54.167% SACHET 1 DF, 2X/DAY AFTER BREAKFAST AND DINNER, ORAL JELLY
     Route: 048
  20. TRICHLORMETHIAZIDE [Concomitant]
     Active Substance: TRICHLORMETHIAZIDE
     Indication: Cardiac failure
     Dosage: 1 DF, 1X/DAY AFTER BREAKFAST
     Route: 048
  21. METOCLOPRAMIDE [Concomitant]
     Active Substance: METOCLOPRAMIDE
     Dosage: 1 DF, 2X/DAY AFTER BREAKFAST AND DINNER
     Route: 048
  22. RABEPRAZOLE SODIUM [Concomitant]
     Active Substance: RABEPRAZOLE SODIUM
     Dosage: 1 DF, 1X/DAY AFTER BREAKFAST
     Route: 048
  23. LIDOCAINE\TRIBENOSIDE [Concomitant]
     Active Substance: LIDOCAINE\TRIBENOSIDE
     Indication: Pain
  24. CADEX [IODINE] [Concomitant]
     Dosage: 40 G, APPLY 1X/DAY
  25. KETOPROFEN [Concomitant]
     Active Substance: KETOPROFEN
     Dosage: 10 CM X 14 CM TAPE, APPLY 1X/DAY

REACTIONS (2)
  - Pancreatitis acute [Recovered/Resolved with Sequelae]
  - Acute kidney injury [Recovered/Resolved with Sequelae]

NARRATIVE: CASE EVENT DATE: 20250601
